FAERS Safety Report 5821217-5 (Version None)
Quarter: 2008Q3

REPORT INFORMATION
  Report Type: 
  Country: None (occurrence: None)
  Receive Date: 20080724
  Receipt Date: 20080716
  Transmission Date: 20090109
  Serious: Yes (Hospitalization)
  Sender: FDA-Public Use
  Company Number: BR-ASTRAZENECA-2008UW14292

PATIENT
  Age: 58 Year
  Sex: Female

DRUGS (4)
  1. SELOKEN [Suspect]
     Route: 048
     Dates: end: 20080626
  2. PLAVIX [Concomitant]
  3. SIMVASTATINA [Concomitant]
     Indication: HYPERCHOLESTEROLAEMIA
     Route: 048
  4. LOSARTANA POTASSICA [Concomitant]

REACTIONS (1)
  - CARDIOVASCULAR DISORDER [None]
